FAERS Safety Report 14389580 (Version 2)
Quarter: 2021Q3

REPORT INFORMATION
  Report Type: Spontaneous
  Country: US (occurrence: US)
  Receive Date: 20180115
  Receipt Date: 20210721
  Transmission Date: 20211014
  Serious: No
  Sender: FDA-Public Use
  Company Number: US-SA-2017SA243772

PATIENT
  Age: 53 Year
  Sex: Female
  Weight: 70 kg

DRUGS (7)
  1. TAXOTERE [Suspect]
     Active Substance: DOCETAXEL
     Indication: BREAST CANCER FEMALE
     Dosage: 140 MG,QW
     Route: 042
     Dates: start: 20140107, end: 20140107
  2. PARAPLATIN [Concomitant]
     Active Substance: CARBOPLATIN
  3. DEXAMETHASONE. [Concomitant]
     Active Substance: DEXAMETHASONE
     Dosage: 20 MG,UNK
     Route: 042
  4. ALOXI [Concomitant]
     Active Substance: PALONOSETRON HYDROCHLORIDE
     Dosage: .25 MG,UNK
     Route: 042
  5. PLATINOL [Concomitant]
     Active Substance: CISPLATIN
  6. APREPITANT. [Concomitant]
     Active Substance: APREPITANT
     Dosage: 150 MG,UNK
     Route: 042
  7. TAXOTERE [Suspect]
     Active Substance: DOCETAXEL
     Dosage: 140 MG,QW
     Route: 042
     Dates: start: 201406, end: 201406

REACTIONS (1)
  - No adverse event [Unknown]
